FAERS Safety Report 6507550-2 (Version None)
Quarter: 2009Q4

REPORT INFORMATION
  Report Type: 
  Country: None (occurrence: None)
  Receive Date: 20091201
  Receipt Date: 20090724
  Transmission Date: 20100525
  Serious: Yes (Hospitalization, Other)
  Sender: FDA-Public Use
  Company Number: 2009-192816-NL

PATIENT
  Age: 23 Year
  Sex: Female
  Weight: 78 kg

DRUGS (8)
  1. NUVARING [Suspect]
     Indication: CONTRACEPTION
     Dates: start: 20061101, end: 20070301
  2. BUSPAR [Concomitant]
  3. WELLBUTRIN [Concomitant]
  4. PAXIL [Concomitant]
  5. NASACORT [Concomitant]
  6. ALLEGRA [Concomitant]
  7. TYLENOL-500 [Concomitant]
  8. PREVACID [Concomitant]

REACTIONS (7)
  - ABDOMINAL PAIN UPPER [None]
  - DIARRHOEA [None]
  - DYSPNOEA [None]
  - INFERTILITY FEMALE [None]
  - PULMONARY EMBOLISM [None]
  - PYREXIA [None]
  - VOMITING [None]
